FAERS Safety Report 23169427 (Version 3)
Quarter: 2024Q4

REPORT INFORMATION
  Report Type: Spontaneous
  Country: CA (occurrence: CA)
  Receive Date: 20231110
  Receipt Date: 20241114
  Transmission Date: 20250115
  Serious: Yes (Other)
  Sender: PFIZER
  Company Number: CA-PFIZER INC-PV202300160070

PATIENT
  Age: 65 Year
  Sex: Female
  Weight: 45.3 kg

DRUGS (4)
  1. ZIRABEV [Suspect]
     Active Substance: BEVACIZUMAB-BVZR
     Dosage: UNK
     Route: 042
     Dates: start: 20230907
  2. ZIRABEV [Suspect]
     Active Substance: BEVACIZUMAB-BVZR
     Dosage: 230 MG, Q 14 DAYS
     Route: 042
     Dates: start: 20230921
  3. ZIRABEV [Suspect]
     Active Substance: BEVACIZUMAB-BVZR
     Dosage: 230 MG, Q 14 DAYS
     Route: 042
     Dates: start: 20231005
  4. ZIRABEV [Suspect]
     Active Substance: BEVACIZUMAB-BVZR
     Dosage: 230 MG, Q 14 DAYS
     Route: 042
     Dates: start: 20231018

REACTIONS (1)
  - Malaise [Unknown]
